FAERS Safety Report 20248096 (Version 1)
Quarter: 2021Q4

REPORT INFORMATION
  Report Type: Spontaneous
  Country: US (occurrence: US)
  Receive Date: 20211229
  Receipt Date: 20211229
  Transmission Date: 20220303
  Serious: Yes (Other)
  Sender: FDA-Public Use
  Company Number: US-PFIZER INC-202101843972

PATIENT
  Age: 42 Year
  Sex: Female

DRUGS (3)
  1. CELEBREX [Suspect]
     Active Substance: CELECOXIB
     Dosage: UNK
     Dates: start: 202111, end: 2021
  2. FLUCONAZOLE [Interacting]
     Active Substance: FLUCONAZOLE
     Indication: Fungal infection
     Dosage: UNK
  3. OPSUMIT [Interacting]
     Active Substance: MACITENTAN
     Dosage: 10 MG, 1X/DAY
     Route: 048
     Dates: start: 20191022

REACTIONS (3)
  - Renal impairment [Unknown]
  - Drug interaction [Unknown]
  - Fungal infection [Unknown]

NARRATIVE: CASE EVENT DATE: 20210101
